FAERS Safety Report 8202679 (Version 3)
Quarter: 2012Q4

REPORT INFORMATION
  Report Type: 
  Country: CA (occurrence: CA)
  Receive Date: 20111027
  Receipt Date: 20121111
  Transmission Date: 20130627
  Serious: Yes (Death, Other)
  Sender: FDA-Public Use
  Company Number: PHHY2010CA82776

PATIENT
  Sex: Male

DRUGS (2)
  1. SANDOSTATIN [Suspect]
  2. SANDOSTATIN LAR [Suspect]
     Indication: CARCINOID TUMOUR
     Dosage: 30 mg every 3 weeks
     Route: 030
     Dates: start: 20080623, end: 20111004

REACTIONS (11)
  - Death [Fatal]
  - Blood pressure diastolic decreased [Unknown]
  - Nasopharyngitis [Recovering/Resolving]
  - Flushing [Unknown]
  - Muscle spasms [Unknown]
  - Abdominal pain [Unknown]
  - Abdominal discomfort [Unknown]
  - Dyspepsia [Unknown]
  - Dizziness [Unknown]
  - Diarrhoea [Unknown]
  - Wheezing [Unknown]
